FAERS Safety Report 8676814 (Version 2)
Quarter: 2012Q4

REPORT INFORMATION
  Report Type: 
  Country: JP (occurrence: JP)
  Receive Date: 20120723
  Receipt Date: 20121204
  Transmission Date: 20130627
  Serious: Yes (Hospitalization, Other)
  Sender: FDA-Public Use
  Company Number: JP-SHIRE-ALL1-2012-03477

PATIENT
  Age: 79 Year
  Sex: Male

DRUGS (10)
  1. FOSRENOL [Suspect]
     Indication: HYPERPHOSPHATAEMIA
     Dosage: 750 mg, 1x/day:qd
     Route: 048
     Dates: start: 20100610, end: 20100707
  2. FOSRENOL [Suspect]
     Dosage: 1500 mg, 1x/day:qd
     Route: 048
     Dates: start: 20100708, end: 20101124
  3. FOSRENOL [Suspect]
     Dosage: 2250 mg, 1x/day:qd
     Route: 048
     Dates: start: 20101125, end: 20120427
  4. LASIX                              /00032601/ [Concomitant]
     Indication: OEDEMA DUE TO RENAL DISEASE
     Dosage: 160 mg, Unknown
     Route: 048
  5. B ASPIRIN [Concomitant]
     Indication: MYOCARDIAL ISCHAEMIA
     Dosage: 100 mg, Unknown
     Route: 048
  6. PARIET [Concomitant]
     Indication: GASTROOESOPHAGEAL REFLUX DISEASE
     Dosage: 10 mg, Unknown
     Route: 048
  7. CALTAN [Concomitant]
     Indication: HYPERPHOSPHATAEMIA
     Dosage: 4500 mg, Unknown
     Route: 048
  8. METROC [Concomitant]
     Indication: PROCEDURAL HYPOTENSION
     Dosage: 10 mg, Unknown
     Route: 048
  9. SHAKANZOTO [Concomitant]
     Indication: PAIN
     Dosage: 2.5 g, Unknown
     Route: 048
  10. ALOSENN                            /00476901/ [Concomitant]
     Indication: CONSTIPATION
     Dosage: 0.5 g, Unknown
     Route: 048

REACTIONS (4)
  - Myocardial infarction [Unknown]
  - Foreign body aspiration [Recovered/Resolved]
  - Proctitis [Recovered/Resolved]
  - Wrong technique in drug usage process [Unknown]
